FAERS Safety Report 8798170 (Version 1)
Quarter: 2012Q4

REPORT INFORMATION
  Report Type: 
  Country: DE (occurrence: DE)
  Receive Date: 20120920
  Receipt Date: 20120920
  Transmission Date: 20130627
  Serious: Yes (Hospitalization)
  Sender: FDA-Public Use
  Company Number: DE-ROCHE-1128779

PATIENT
  Sex: Female

DRUGS (3)
  1. LUCENTIS [Suspect]
     Indication: AGE-RELATED MACULAR DEGENERATION
     Route: 050
     Dates: start: 20070815
  2. LUCENTIS [Suspect]
     Route: 050
     Dates: start: 200709
  3. LUCENTIS [Suspect]
     Route: 050
     Dates: start: 2007

REACTIONS (2)
  - Pleural effusion [Recovered/Resolved]
  - Dyspepsia [Recovered/Resolved]
